FAERS Safety Report 21994739 (Version 5)
Quarter: 2023Q2

REPORT INFORMATION
  Report Type: Spontaneous
  Country: US (occurrence: US)
  Receive Date: 20230215
  Receipt Date: 20230615
  Transmission Date: 20230721
  Serious: No
  Sender: FDA-Public Use
  Company Number: US-PFIZER INC-PV202200076707

PATIENT
  Age: 16 Year
  Sex: Female

DRUGS (2)
  1. GENOTROPIN [Suspect]
     Active Substance: SOMATROPIN
     Indication: Turner^s syndrome
     Dosage: 2.5 MG, DAILY
     Dates: start: 20220921
  2. GENOTROPIN [Suspect]
     Active Substance: SOMATROPIN
     Dosage: ALTERNATE DAY (2.0 AND 2.2MG)
     Dates: start: 202209

REACTIONS (4)
  - Product prescribing error [Unknown]
  - Device information output issue [Unknown]
  - Drug dose omission by device [Unknown]
  - Device power source issue [Unknown]

NARRATIVE: CASE EVENT DATE: 20220921
